FAERS Safety Report 8153670-9 (Version None)
Quarter: 2012Q1

REPORT INFORMATION
  Report Type: 
  Country: None (occurrence: None)
  Receive Date: 20120221
  Receipt Date: 20120215
  Transmission Date: 20120608
  Serious: Yes (Hospitalization, Other)
  Sender: FDA-Public Use
  Company Number: US-BAYER-2011-055171

PATIENT
  Age: 24 Year
  Sex: Female
  Weight: 90.703 kg

DRUGS (3)
  1. ORTHO EVRA [Concomitant]
     Dosage: UNK
     Dates: start: 20080101, end: 20080101
  2. YAZ [Suspect]
     Indication: CONTRACEPTION
     Dosage: UNK
     Dates: start: 20080101, end: 20100901
  3. PRILOSEC [Concomitant]
     Indication: DYSPEPSIA
     Dosage: UNK UNK, QD
     Dates: start: 20090401

REACTIONS (5)
  - ABDOMINAL PAIN [None]
  - GALLBLADDER INJURY [None]
  - CHOLELITHIASIS [None]
  - CHOLECYSTITIS ACUTE [None]
  - BILIARY COLIC [None]
